FAERS Safety Report 24728775 (Version 1)
Quarter: 2024Q4

REPORT INFORMATION
  Report Type: Report from Study
  Country: US (occurrence: US)
  Receive Date: 20241212
  Receipt Date: 20241212
  Transmission Date: 20250115
  Serious: Yes (Hospitalization, Other)
  Sender: NOVARTIS
  Company Number: US-002147023-NVSC2024US149165

PATIENT
  Age: 45 Year
  Sex: Female

DRUGS (1)
  1. KESIMPTA [Suspect]
     Active Substance: OFATUMUMAB
     Indication: Multiple sclerosis
     Dosage: 20 MG, QMO
     Route: 058
     Dates: start: 20240420

REACTIONS (9)
  - Fall [Unknown]
  - Multiple sclerosis relapse [Unknown]
  - Dysstasia [Unknown]
  - Paralysis [Unknown]
  - Accident [Unknown]
  - Mobility decreased [Unknown]
  - Swollen tongue [Unknown]
  - Tongue biting [Unknown]
  - Hypoaesthesia [Unknown]

NARRATIVE: CASE EVENT DATE: 20240420
